FAERS Safety Report 23952754 (Version 2)
Quarter: 2024Q2

REPORT INFORMATION
  Report Type: Spontaneous
  Country: TR (occurrence: TR)
  Receive Date: 20240607
  Receipt Date: 20240624
  Transmission Date: 20240716
  Serious: Yes (Other)
  Sender: FDA-Public Use
  Company Number: TR-009507513-2406TUR000292

PATIENT
  Sex: Female

DRUGS (2)
  1. TEMODAL [Suspect]
     Active Substance: TEMOZOLOMIDE
     Indication: Brain neoplasm
     Dosage: 120 MILLIGRAM
     Route: 048
     Dates: start: 2024, end: 2024
  2. TEMODAL [Suspect]
     Active Substance: TEMOZOLOMIDE
     Dosage: 240 MILLIGRAM
     Route: 048
     Dates: start: 2024, end: 2024

REACTIONS (5)
  - Loss of consciousness [Unknown]
  - Pyrexia [Unknown]
  - Fatigue [Unknown]
  - Eye movement disorder [Unknown]
  - Hypersensitivity [Unknown]

NARRATIVE: CASE EVENT DATE: 20240101
